FAERS Safety Report 19467457 (Version 1)
Quarter: 2021Q2

REPORT INFORMATION
  Report Type: Spontaneous
  Country: US (occurrence: US)
  Receive Date: 20210625
  Receipt Date: 20210625
  Transmission Date: 20210717
  Serious: Yes (Death)
  Sender: FDA-Public Use
  Company Number: None

PATIENT
  Age: 41 Year
  Sex: Male

DRUGS (1)
  1. GENOTROPIN [Suspect]
     Active Substance: SOMATROPIN
     Dosage: OTHER
     Route: 058
     Dates: start: 202009

REACTIONS (1)
  - Death [None]

NARRATIVE: CASE EVENT DATE: 20210618
